FAERS Safety Report 25686441 (Version 1)
Quarter: 2025Q3

REPORT INFORMATION
  Report Type: Spontaneous
  Country: US (occurrence: US)
  Receive Date: 20250815
  Receipt Date: 20250815
  Transmission Date: 20251020
  Serious: Yes (Other)
  Sender: PHARMACEUTICAL ASSOC
  Company Number: US-PAIPHARMA-2025-US-038397

PATIENT
  Age: 66 Year
  Sex: Female

DRUGS (3)
  1. VALPROIC ACID [Suspect]
     Active Substance: VALPROIC ACID
     Indication: Bipolar disorder
  2. APIXABAN [Suspect]
     Active Substance: APIXABAN
     Indication: Pulmonary embolism
  3. LITHIUM [Concomitant]
     Active Substance: LITHIUM

REACTIONS (2)
  - Drug interaction [Unknown]
  - Deep vein thrombosis [Unknown]
